FAERS Safety Report 5867466-1 (Version None)
Quarter: 2008Q3

REPORT INFORMATION
  Report Type: 
  Country: None (occurrence: None)
  Receive Date: 20080902
  Receipt Date: 20080821
  Transmission Date: 20090109
  Serious: Yes (Other)
  Sender: FDA-Public Use
  Company Number: GB-JNJFOC-20080900073

PATIENT
  Sex: Female
  Weight: 114 kg

DRUGS (6)
  1. TRAMADOL HCL [Suspect]
     Dosage: 50 MG CAPSULES
     Route: 048
  2. TRAMADOL HCL [Suspect]
     Indication: BACK PAIN
     Dosage: 50 MG CAPSULES
     Route: 048
  3. TRAMADOL HCL [Suspect]
     Indication: ARTHRALGIA
     Route: 048
  4. ACETAMINOPHEN [Concomitant]
  5. ATENOLOL [Concomitant]
  6. THYROXINE [Concomitant]
     Indication: HYPOTHYROIDISM

REACTIONS (1)
  - HYPOTHALAMO-PITUITARY DISORDER [None]
